FAERS Safety Report 24199477 (Version 11)
Quarter: 2025Q3

REPORT INFORMATION
  Report Type: Spontaneous
  Country: JP (occurrence: JP)
  Receive Date: 20240812
  Receipt Date: 20250919
  Transmission Date: 20251021
  Serious: Yes (Death, Life-Threatening, Hospitalization, Other)
  Sender: ASTELLAS
  Company Number: JP-ASTELLAS-2024JP005600

PATIENT
  Age: 74 Year
  Sex: Female
  Weight: 60 kg

DRUGS (38)
  1. PADCEV [Suspect]
     Active Substance: ENFORTUMAB VEDOTIN-EJFV
     Indication: Malignant neoplasm of renal pelvis
     Route: 042
     Dates: start: 20240718, end: 20240801
  2. THYRADIN-S TABLETS [Concomitant]
     Indication: Hypothyroidism
     Dosage: AFTER BREAKFAST
     Route: 065
     Dates: start: 20240619, end: 20240709
  3. THYRADIN-S TABLETS [Concomitant]
     Indication: Thyroiditis
  4. Cilnidipine tablets [Concomitant]
     Indication: Hypertension
     Dosage: AFTER BREAKFAST
     Route: 065
     Dates: end: 20240809
  5. FAMOTIDINE [Concomitant]
     Active Substance: FAMOTIDINE
     Indication: Chronic gastritis
     Dosage: AFTER DINNER
     Route: 065
     Dates: end: 20240810
  6. CLOPIDOGREL [Concomitant]
     Active Substance: CLOPIDOGREL BISULFATE
     Indication: Cerebral infarction
     Dosage: AFTER BREAKFAST
     Route: 065
     Dates: end: 20240810
  7. LEXAPRO [Concomitant]
     Active Substance: ESCITALOPRAM OXALATE
     Indication: Insomnia
     Dosage: AFTER DINNER
     Route: 065
     Dates: end: 20240810
  8. Atarax-P Capsules [Concomitant]
     Indication: Insomnia
     Dosage: BEFORE SLEEPING
     Route: 065
     Dates: end: 20240809
  9. ETIZOLAM [Concomitant]
     Active Substance: ETIZOLAM
     Indication: Insomnia
     Dosage: BEFORE SLEEPING
     Route: 065
     Dates: end: 20240809
  10. Pitavastatin Calcium OD Tablets [Concomitant]
     Indication: Dyslipidaemia
     Dosage: BEFORE SLEEPING
     Route: 065
  11. Urso tablets [Concomitant]
     Indication: Hepatic function abnormal
     Dosage: AFTER BREAKFAST, LUNCH, AND DINNER
     Route: 065
     Dates: end: 20240810
  12. MIYA-BM [Concomitant]
     Active Substance: CLOSTRIDIUM BUTYRICUM SPORES STRAIN M-55
     Indication: Diarrhoea
     Dosage: AFTER BREAKFAST, LUNCH, AND DINNER
     Route: 065
     Dates: end: 20240810
  13. Lopemin Capsules [Concomitant]
     Indication: Diarrhoea
     Route: 065
     Dates: end: 20240810
  14. Magnesium oxide tablets [Concomitant]
     Indication: Constipation
     Dosage: AFTER DINNER
     Route: 065
     Dates: end: 20240810
  15. SENNOSIDES [Concomitant]
     Active Substance: SENNOSIDES
     Indication: Constipation
     Route: 065
     Dates: end: 20240810
  16. Tramal OD Tablets [Concomitant]
     Indication: Cancer pain
     Route: 048
     Dates: end: 20240810
  17. METOCLOPRAMIDE [Concomitant]
     Active Substance: METOCLOPRAMIDE
     Indication: Nausea
     Route: 065
     Dates: end: 20240810
  18. CALONAL [Concomitant]
     Active Substance: ACETAMINOPHEN
     Indication: Cancer pain
     Route: 065
     Dates: end: 20240810
  19. CEFEPIME [Concomitant]
     Active Substance: CEFEPIME HYDROCHLORIDE
     Indication: Febrile neutropenia
     Route: 042
     Dates: start: 20240808, end: 20240812
  20. FILGRASTIM [Concomitant]
     Active Substance: FILGRASTIM
     Indication: Febrile neutropenia
     Route: 058
     Dates: start: 20240808, end: 20240813
  21. BETAMETHASONE BUTYRATE PROPIONATE [Concomitant]
     Active Substance: BETAMETHASONE BUTYRATE PROPIONATE
     Indication: Stevens-Johnson syndrome
     Route: 061
     Dates: start: 20240810, end: 20240814
  22. MEROPENEM [Concomitant]
     Active Substance: MEROPENEM
     Indication: Febrile neutropenia
     Route: 042
     Dates: start: 20240813, end: 20240814
  23. LATACHIMO COMBINATION OPHTHALMIC SOLUTION [Concomitant]
     Indication: Product used for unknown indication
     Route: 031
  24. Pirenoxine ophthalmic suspension [Concomitant]
     Indication: Product used for unknown indication
     Route: 031
  25. Hyaluronate Na Ophthalmic Solution [Concomitant]
     Indication: Product used for unknown indication
     Route: 031
  26. LOXOPROFEN Sodium TAPES [Concomitant]
     Indication: Product used for unknown indication
     Route: 065
  27. DOMPERIDONE [Concomitant]
     Active Substance: DOMPERIDONE
     Indication: Product used for unknown indication
     Dosage: AFTER BREAKFAST, LUNCH, AND DINNER
     Route: 065
  28. Potassium Iodide Pills [Concomitant]
     Indication: Product used for unknown indication
     Dosage: AFTER BREAKFAST
     Route: 065
     Dates: start: 20240515, end: 20240619
  29. THYRADIN-S TABLETS [Concomitant]
     Indication: Hypothyroidism
     Dosage: AFTER BREAKFAST
     Route: 065
     Dates: start: 20240710
  30. THYRADIN-S TABLETS [Concomitant]
     Indication: Thyroiditis
  31. ACETAMINOPHEN [Concomitant]
     Active Substance: ACETAMINOPHEN
     Indication: Product used for unknown indication
     Dosage: AFTER BREAKFAST, LUNCH, AND DINNER
     Route: 065
     Dates: start: 20240710
  32. CALCIUM CARBONATE\CHOLECALCIFEROL\MAGNESIUM CARBONATE [Concomitant]
     Active Substance: CALCIUM CARBONATE\CHOLECALCIFEROL\MAGNESIUM CARBONATE
     Indication: Product used for unknown indication
     Dosage: AFTER BREAKFAST
     Route: 065
     Dates: start: 20240801
  33. ACETAMINOPHEN [Concomitant]
     Active Substance: ACETAMINOPHEN
     Indication: Product used for unknown indication
     Route: 042
     Dates: start: 20240809, end: 20240813
  34. Zinc Oxide Ointment [Concomitant]
     Indication: Stevens-Johnson syndrome
     Route: 065
     Dates: start: 20240810
  35. GENTACIN  Ointment [Concomitant]
     Indication: Stevens-Johnson syndrome
     Route: 065
     Dates: start: 20240810
  36. OLIVE OIL [Concomitant]
     Active Substance: OLIVE OIL
     Indication: Stevens-Johnson syndrome
     Route: 065
     Dates: start: 20240810
  37. WHITE PETROLATUM [Concomitant]
     Active Substance: PETROLATUM
     Indication: Product used for unknown indication
     Route: 065
     Dates: start: 20240813
  38. DENOSUMAB [Concomitant]
     Active Substance: DENOSUMAB
     Indication: Product used for unknown indication
     Route: 058
     Dates: start: 20240801

REACTIONS (7)
  - Febrile neutropenia [Fatal]
  - Stevens-Johnson syndrome [Fatal]
  - Septic shock [Fatal]
  - Diarrhoea [Unknown]
  - Renal impairment [Not Recovered/Not Resolved]
  - Hepatic function abnormal [Not Recovered/Not Resolved]
  - Overdose [Unknown]

NARRATIVE: CASE EVENT DATE: 20240718
